FAERS Safety Report 14785220 (Version 1)
Quarter: 2018Q2

REPORT INFORMATION
  Report Type: Spontaneous
  Country: US (occurrence: US)
  Receive Date: 20180420
  Receipt Date: 20180420
  Transmission Date: 20180711
  Serious: No
  Sender: FDA-Public Use
  Company Number: US-DUCHESNAY INC.-2017US017575

PATIENT
  Age: 65 Year
  Sex: Female

DRUGS (5)
  1. LISINOPRIL. [Concomitant]
     Active Substance: LISINOPRIL
     Indication: PRODUCT USED FOR UNKNOWN INDICATION
     Dosage: 4.5 MG, UNK
     Route: 065
     Dates: end: 20170501
  2. OSPHENA [Suspect]
     Active Substance: OSPEMIFENE
     Indication: PRODUCT USED FOR UNKNOWN INDICATION
     Dosage: 60 MG, DAILY
     Route: 048
     Dates: start: 201704, end: 20170430
  3. METOPROLOL. [Concomitant]
     Active Substance: METOPROLOL
     Indication: PRODUCT USED FOR UNKNOWN INDICATION
     Route: 065
  4. OSPHENA [Suspect]
     Active Substance: OSPEMIFENE
     Dosage: 90 MG, DAILY
     Route: 048
     Dates: start: 20170501, end: 20170510
  5. WELLBUTRIN [Concomitant]
     Active Substance: BUPROPION HYDROCHLORIDE
     Indication: PRODUCT USED FOR UNKNOWN INDICATION
     Dosage: UNK
     Route: 065

REACTIONS (6)
  - Accidental overdose [Unknown]
  - Bladder spasm [Not Recovered/Not Resolved]
  - Abdominal pain [Not Recovered/Not Resolved]
  - Urinary tract infection [None]
  - Wrong drug administered [Unknown]
  - Bladder dilatation [Not Recovered/Not Resolved]

NARRATIVE: CASE EVENT DATE: 20170505
